FAERS Safety Report 25920789 (Version 1)
Quarter: 2025Q4

REPORT INFORMATION
  Report Type: Spontaneous
  Country: US (occurrence: US)
  Receive Date: 20251014
  Receipt Date: 20251014
  Transmission Date: 20260118
  Serious: Yes (Other)
  Sender: REGENERON
  Company Number: US-REGENERON PHARMACEUTICALS, INC.-2025-147660

PATIENT
  Age: 54 Year
  Sex: Male

DRUGS (2)
  1. EYLEA [Suspect]
     Active Substance: AFLIBERCEPT
     Indication: Diabetic retinal oedema
     Dosage: 2 MG, INTO LEFT EYE, (FORMULATION: PRE-FILLED SYRINGE GERRESHEIMER)
     Route: 031
     Dates: start: 20250711, end: 20250711
  2. EYLEA [Suspect]
     Active Substance: AFLIBERCEPT
     Indication: Diabetic retinopathy

REACTIONS (3)
  - Blindness transient [Recovered/Resolved]
  - Ocular hypertension [Recovered/Resolved]
  - Retinal occlusive vasculitis [Recovered/Resolved]

NARRATIVE: CASE EVENT DATE: 20250711
